FAERS Safety Report 17370412 (Version 1)
Quarter: 2020Q1

REPORT INFORMATION
  Report Type: Spontaneous
  Country: US (occurrence: US)
  Receive Date: 20200205
  Receipt Date: 20200205
  Transmission Date: 20200409
  Serious: Yes (Other)
  Sender: FDA-Public Use
  Company Number: US-AMGEN-USASP2020018134

PATIENT
  Age: 57 Year
  Sex: Male

DRUGS (8)
  1. VECTIBIX [Suspect]
     Active Substance: PANITUMUMAB
     Dosage: 338 MILLIGRAM, Q2WK
     Route: 065
     Dates: start: 20191119, end: 2019
  2. 5 FU [Concomitant]
     Active Substance: FLUOROURACIL
     Indication: COLON CANCER METASTATIC
     Dosage: UNK UNK, Q2WK
     Dates: start: 20191029
  3. VECTIBIX [Suspect]
     Active Substance: PANITUMUMAB
     Dosage: 300 MILLIGRAM, Q2WK
     Route: 065
     Dates: start: 20191217, end: 201912
  4. VECTIBIX [Suspect]
     Active Substance: PANITUMUMAB
     Indication: COLON CANCER METASTATIC
     Dosage: 400 MILLIGRAM, Q2WK
     Route: 065
     Dates: start: 20191022, end: 2019
  5. FOLINIC ACID [Concomitant]
     Active Substance: LEUCOVORIN
     Indication: COLON CANCER METASTATIC
     Dosage: UNK UNK, Q2WK
     Dates: start: 20191022
  6. IRINOTECAN [Concomitant]
     Active Substance: IRINOTECAN
     Indication: COLON CANCER METASTATIC
     Dosage: UNK UNK, Q2WK
     Dates: start: 20191029
  7. VECTIBIX [Suspect]
     Active Substance: PANITUMUMAB
     Dosage: 335 MILLIGRAM, Q2WK
     Route: 065
     Dates: start: 20191231, end: 202001
  8. VECTIBIX [Suspect]
     Active Substance: PANITUMUMAB
     Dosage: 300 MILLIGRAM, Q2WK
     Route: 065
     Dates: start: 202001

REACTIONS (1)
  - Acute kidney injury [Unknown]

NARRATIVE: CASE EVENT DATE: 20200128
